FAERS Safety Report 6361782-5 (Version None)
Quarter: 2009Q3

REPORT INFORMATION
  Report Type: 
  Country: None (occurrence: None)
  Receive Date: 20090918
  Receipt Date: 20090908
  Transmission Date: 20100115
  Serious: Yes (Disabling, Other)
  Sender: FDA-Public Use
  Company Number: US-PFIZER INC-2009266956

PATIENT
  Sex: Female
  Weight: 91 kg

DRUGS (3)
  1. PREMARIN [Suspect]
     Indication: HORMONE REPLACEMENT THERAPY
     Dosage: UNK
     Dates: start: 19820101, end: 19970101
  2. PROGESTERONE [Suspect]
     Indication: HORMONE REPLACEMENT THERAPY
     Dosage: UNK
     Route: 048
  3. ACETYLSALICYLIC ACID [Concomitant]
     Indication: THROMBOSIS
     Dosage: UNK

REACTIONS (1)
  - BREAST CANCER FEMALE [None]
